FAERS Safety Report 7957623-2 (Version None)
Quarter: 2011Q4

REPORT INFORMATION
  Report Type: 
  Country: None (occurrence: None)
  Receive Date: 20111205
  Receipt Date: 20111123
  Transmission Date: 20120403
  Serious: Yes (Other)
  Sender: FDA-Public Use
  Company Number: PHHY2011BE101785

PATIENT
  Sex: Female

DRUGS (3)
  1. CALCIUM [Concomitant]
     Dosage: UNK UKN, UNK
     Route: 065
  2. FEMARA [Suspect]
     Indication: BREAST CANCER
     Dosage: 2.5 MG, UNK
     Route: 048
     Dates: start: 20110208, end: 20111108
  3. VITAMIN D [Concomitant]
     Dosage: UNK UKN, UNK
     Route: 065

REACTIONS (2)
  - MACULOPATHY [None]
  - VISUAL IMPAIRMENT [None]
